FAERS Safety Report 4730550-X (Version None)
Quarter: 2005Q3

REPORT INFORMATION
  Report Type: 
  Country: None (occurrence: None)
  Receive Date: 20050725
  Receipt Date: 20050518
  Transmission Date: 20060218
  Serious: No
  Sender: FDA-Public Use
  Company Number: USA050291011

PATIENT
  Age: 40 Year
  Sex: Female
  Weight: 75 kg

DRUGS (5)
  1. STRATTERA [Suspect]
     Dosage: 18 MG/1 DAY
     Dates: start: 20050113, end: 20050201
  2. KLONOPIN [Concomitant]
  3. PAXIL [Concomitant]
  4. ZYRTEC [Concomitant]
  5. ASTELIN [Concomitant]

REACTIONS (5)
  - HEART RATE INCREASED [None]
  - INSOMNIA [None]
  - MIDDLE INSOMNIA [None]
  - PALPITATIONS [None]
  - RESTLESSNESS [None]
